FAERS Safety Report 15705598 (Version 1)
Quarter: 2018Q4

REPORT INFORMATION
  Report Type: Spontaneous
  Country: US (occurrence: US)
  Receive Date: 20181210
  Receipt Date: 20181210
  Transmission Date: 20190205
  Serious: Yes (Other)
  Sender: FDA-Public Use
  Company Number: None

PATIENT
  Age: 33 Year
  Sex: Female
  Weight: 85.5 kg

DRUGS (2)
  1. CYMBALTA [Suspect]
     Active Substance: DULOXETINE HYDROCHLORIDE
     Indication: DEPRESSION
     Route: 048
     Dates: start: 20181001, end: 20181203
  2. NUERONTIN [Concomitant]

REACTIONS (14)
  - Drug withdrawal syndrome [None]
  - Dizziness [None]
  - Anxiety [None]
  - Hyperhidrosis [None]
  - Diarrhoea [None]
  - Muscle twitching [None]
  - Nausea [None]
  - Fatigue [None]
  - Chills [None]
  - Nightmare [None]
  - Presyncope [None]
  - Pain [None]
  - Formication [None]
  - Nervousness [None]

NARRATIVE: CASE EVENT DATE: 20181203
